FAERS Safety Report 8572868-9 (Version None)
Quarter: 2012Q3

REPORT INFORMATION
  Report Type: 
  Country: None (occurrence: None)
  Receive Date: 20120806
  Receipt Date: 20120302
  Transmission Date: 20120928
  Serious: No
  Sender: FDA-Public Use
  Company Number: US-009507513-2012SP015298

PATIENT

DRUGS (1)
  1. LOTRIMIN AF [Suspect]
     Indication: PRODUCT USED FOR UNKNOWN INDICATION
     Dosage: UNK UNK, UNKNOWN
     Route: 061
     Dates: start: 20120101

REACTIONS (3)
  - SKIN IRRITATION [None]
  - BURNING SENSATION [None]
  - RASH [None]
